FAERS Safety Report 10506674 (Version 28)
Quarter: 2016Q4

REPORT INFORMATION
  Report Type: Report from Study
  Country: CA (occurrence: CA)
  Receive Date: 20141009
  Receipt Date: 20161202
  Transmission Date: 20170206
  Serious: Yes (Hospitalization, Other)
  Sender: FDA-Public Use
  Company Number: CA-ROCHE-1145057

PATIENT
  Age: 60 Year
  Sex: Female
  Weight: 97.5 kg

DRUGS (20)
  1. FOLIC ACID. [Concomitant]
     Active Substance: FOLIC ACID
     Dosage: STOPPED
     Route: 065
  2. ADVAIR HFA [Concomitant]
     Active Substance: FLUTICASONE PROPIONATE\SALMETEROL XINAFOATE
  3. RABEPRAZOLE [Concomitant]
     Active Substance: RABEPRAZOLE
  4. PREDNISONE. [Concomitant]
     Active Substance: PREDNISONE
  5. CALTRATE [Concomitant]
     Active Substance: CALCIUM CARBONATE
  6. REACTINE (CANADA) [Concomitant]
     Active Substance: CETIRIZINE HYDROCHLORIDE
  7. ACETAMINOPHEN. [Concomitant]
     Active Substance: ACETAMINOPHEN
     Indication: PREMEDICATION
     Route: 048
     Dates: start: 20120919
  8. ACTONEL [Suspect]
     Active Substance: RISEDRONATE SODIUM
     Indication: PRODUCT USED FOR UNKNOWN INDICATION
     Dosage: STOPPED
     Route: 065
  9. FLUOXETINE [Concomitant]
     Active Substance: FLUOXETINE HYDROCHLORIDE
  10. METHYLPREDNISOLONE. [Concomitant]
     Active Substance: METHYLPREDNISOLONE
     Indication: PREMEDICATION
     Route: 042
     Dates: start: 20120919, end: 20151201
  11. SALBUTAMOL [Concomitant]
     Active Substance: ALBUTEROL
  12. DIPHENHYDRAMINE HCL [Concomitant]
     Active Substance: DIPHENHYDRAMINE HYDROCHLORIDE
     Indication: PREMEDICATION
     Route: 048
     Dates: start: 20120919
  13. AVAMYS [Concomitant]
     Active Substance: FLUTICASONE FUROATE
  14. METHOTREXATE. [Concomitant]
     Active Substance: METHOTREXATE
     Dosage: STOPPED
     Route: 065
  15. RITUXAN [Suspect]
     Active Substance: RITUXIMAB
     Indication: RHEUMATOID ARTHRITIS
     Dosage: LAST DOSE ON 18/NOV/2014
     Route: 042
     Dates: start: 20120919
  16. LIPITOR [Concomitant]
     Active Substance: ATORVASTATIN CALCIUM
  17. GRAVOL [Concomitant]
     Active Substance: DIMENHYDRINATE
  18. ACETAMINOPHEN. [Concomitant]
     Active Substance: ACETAMINOPHEN
     Route: 048
     Dates: start: 20140919
  19. RAMIPRIL. [Suspect]
     Active Substance: RAMIPRIL
     Indication: PRODUCT USED FOR UNKNOWN INDICATION
     Dosage: STOPPED
     Route: 065
  20. CELEBREX [Concomitant]
     Active Substance: CELECOXIB
     Dosage: STOPPED
     Route: 065

REACTIONS (46)
  - Immunodeficiency [Unknown]
  - Heart rate decreased [Unknown]
  - Rheumatoid arthritis [Not Recovered/Not Resolved]
  - Cough [Recovering/Resolving]
  - Precancerous cells present [Unknown]
  - Flushing [Not Recovered/Not Resolved]
  - Productive cough [Recovered/Resolved]
  - Rheumatoid arthritis [Unknown]
  - Arthralgia [Unknown]
  - Pain in extremity [Unknown]
  - Plantar fasciitis [Unknown]
  - Drug ineffective [Unknown]
  - Throat irritation [Recovering/Resolving]
  - Blood glucose increased [Unknown]
  - Scar [Not Recovered/Not Resolved]
  - Infusion related reaction [Unknown]
  - Fatigue [Unknown]
  - Eyelid disorder [Unknown]
  - Activities of daily living impaired [Unknown]
  - Benign neoplasm [Unknown]
  - Memory impairment [Not Recovered/Not Resolved]
  - General physical health deterioration [Not Recovered/Not Resolved]
  - Constipation [Unknown]
  - Eye irritation [Not Recovered/Not Resolved]
  - Oxygen saturation decreased [Unknown]
  - Spinal disorder [Unknown]
  - Cough [Not Recovered/Not Resolved]
  - Rheumatoid lung [Not Recovered/Not Resolved]
  - Sensory disturbance [Not Recovered/Not Resolved]
  - Joint swelling [Not Recovered/Not Resolved]
  - Cellulitis [Not Recovered/Not Resolved]
  - Oxygen saturation decreased [Unknown]
  - Nausea [Not Recovered/Not Resolved]
  - Headache [Not Recovered/Not Resolved]
  - Hyperhidrosis [Not Recovered/Not Resolved]
  - Respiratory rate increased [Unknown]
  - Blood pressure increased [Unknown]
  - Insomnia [Recovering/Resolving]
  - Eye pruritus [Recovering/Resolving]
  - Chest pain [Recovering/Resolving]
  - Aphasia [Not Recovered/Not Resolved]
  - Lacrimation increased [Recovering/Resolving]
  - Skin graft contracture [Not Recovered/Not Resolved]
  - Hypersensitivity [Unknown]
  - Pain [Not Recovered/Not Resolved]
  - Mobility decreased [Not Recovered/Not Resolved]

NARRATIVE: CASE EVENT DATE: 20120919
